FAERS Safety Report 15249938 (Version 1)
Quarter: 2018Q3

REPORT INFORMATION
  Report Type: Spontaneous
  Country: ES (occurrence: ES)
  Receive Date: 20180807
  Receipt Date: 20180807
  Transmission Date: 20181010
  Serious: Yes (Other)
  Sender: FDA-Public Use
  Company Number: ES-GLAXOSMITHKLINE-ES2018GSK140264

PATIENT
  Age: 41 Year
  Sex: Female

DRUGS (3)
  1. NIQUITIN [Suspect]
     Active Substance: NICOTINE
     Indication: SMOKING CESSATION THERAPY
     Dosage: 2 DF, UNK
     Route: 065
     Dates: start: 20180727, end: 20180727
  2. NIQUITIN [Suspect]
     Active Substance: NICOTINE
     Dosage: UNK, 5?6 DF
     Route: 065
     Dates: start: 20180728, end: 20180728
  3. NIQUITIN [Suspect]
     Active Substance: NICOTINE
     Dosage: UNK (2)
     Route: 065
     Dates: start: 20180729, end: 20180729

REACTIONS (4)
  - Choking sensation [Recovered/Resolved]
  - Somnolence [Recovered/Resolved]
  - Sensation of foreign body [Recovered/Resolved]
  - Throat irritation [Recovered/Resolved]

NARRATIVE: CASE EVENT DATE: 20180727
